FAERS Safety Report 7815536-0 (Version None)
Quarter: 2011Q4

REPORT INFORMATION
  Report Type: 
  Country: None (occurrence: None)
  Receive Date: 20111014
  Receipt Date: 20111004
  Transmission Date: 20120403
  Serious: Yes (Other)
  Sender: FDA-Public Use
  Company Number: US-JNJFOC-20111002055

PATIENT
  Sex: Female
  Weight: 122.47 kg

DRUGS (6)
  1. ASACOL [Concomitant]
     Route: 048
  2. CALCIUM CARBONATE [Concomitant]
     Indication: MEDICAL DIET
     Route: 003
  3. REMICADE [Suspect]
     Indication: COLITIS ULCERATIVE
     Route: 042
     Dates: start: 20100101
  4. SYNTHROID [Concomitant]
     Indication: HYPOTHYROIDISM
     Route: 048
  5. POTASSIUM CHLORIDE [Concomitant]
     Route: 048
  6. LASIX [Concomitant]
     Indication: FLUID OVERLOAD
     Route: 048

REACTIONS (9)
  - BLOOD GLUCOSE FLUCTUATION [None]
  - INSOMNIA [None]
  - BLOOD URIC ACID INCREASED [None]
  - PRURITUS [None]
  - FATIGUE [None]
  - MYALGIA [None]
  - DYSPNOEA [None]
  - ARTHRALGIA [None]
  - RASH [None]
